FAERS Safety Report 4569077-7 (Version None)
Quarter: 2005Q1

REPORT INFORMATION
  Report Type: 
  Country: None (occurrence: None)
  Receive Date: 20050203
  Receipt Date: 20050128
  Transmission Date: 20050727
  Serious: Yes (Hospitalization, Other)
  Sender: FDA-Public Use
  Company Number: US-BRISTOL-MYERS SQUIBB COMPANY-12841235

PATIENT
  Age: 51 Year
  Sex: Male

DRUGS (2)
  1. SUSTIVA [Suspect]
     Route: 048
     Dates: start: 20041209, end: 20041220
  2. EPZICOM [Suspect]
     Indication: HIV INFECTION
     Route: 048

REACTIONS (3)
  - DRUG HYPERSENSITIVITY [None]
  - NEPHRITIS INTERSTITIAL [None]
  - RENAL FAILURE ACUTE [None]
